FAERS Safety Report 6145237-9 (Version None)
Quarter: 2009Q2

REPORT INFORMATION
  Report Type: 
  Country: None (occurrence: None)
  Receive Date: 20090401
  Receipt Date: 20090324
  Transmission Date: 20091009
  Serious: Yes (Hospitalization)
  Sender: FDA-Public Use
  Company Number: 2009JP000310

PATIENT
  Age: 82 Year
  Sex: Female
  Weight: 60.5 kg

DRUGS (9)
  1. VESICARE [Suspect]
     Indication: HYPERTONIC BLADDER
     Dosage: 2.5 MG, BID, ORAL
     Route: 048
     Dates: start: 20061107, end: 20090118
  2. CERCINE TABLET [Concomitant]
  3. GASMOTIN (MOSAPRIDE CITRATE) [Concomitant]
  4. MAGLAX (MAGNESIUM OXIDE) [Concomitant]
  5. ABILIT [Concomitant]
  6. CANDESARTAN CILEXETIL [Concomitant]
  7. LIVALO (ITAVASTATIN CALCIUM) [Concomitant]
  8. RABEPRAZOLE SODIUM [Concomitant]
  9. LUVOX [Concomitant]

REACTIONS (6)
  - DEHYDRATION [None]
  - FALL [None]
  - GENERAL PHYSICAL HEALTH DETERIORATION [None]
  - IMMOBILE [None]
  - NEUROGENIC BLADDER [None]
  - RENAL FAILURE ACUTE [None]
